FAERS Safety Report 9312820 (Version 4)
Quarter: 2014Q1

REPORT INFORMATION
  Report Type: Spontaneous
  Country: US (occurrence: US)
  Receive Date: 20130528
  Receipt Date: 20140314
  Transmission Date: 20141002
  Serious: Yes (Hospitalization)
  Sender: FDA-Public Use
  Company Number: US-009507513-1305USA013032

PATIENT
  Sex: Male

DRUGS (5)
  1. PROSCAR [Suspect]
     Indication: BENIGN PROSTATIC HYPERPLASIA
     Dosage: 5 MG, QD
     Route: 048
     Dates: start: 20090715, end: 20111003
  2. FINASTERIDE [Suspect]
     Indication: BENIGN PROSTATIC HYPERPLASIA
     Dosage: 5 MG, QD
     Dates: start: 20090707
  3. FINASTERIDE [Suspect]
     Indication: BENIGN PROSTATIC HYPERPLASIA
     Dosage: 5 MG, QD
     Route: 048
     Dates: start: 20090707
  4. PLAVIX [Concomitant]
     Indication: CARDIAC DISORDER
     Dosage: UNK
     Dates: start: 20051102, end: 20100325
  5. FLOMAX (TAMSULOSIN HYDROCHLORIDE) [Concomitant]
     Indication: BENIGN PROSTATIC HYPERPLASIA
     Dosage: 0.4 MG, UNK
     Route: 048
     Dates: start: 200910

REACTIONS (8)
  - Gastrointestinal haemorrhage [Unknown]
  - Glucose urine present [Unknown]
  - Gastritis [Unknown]
  - Vomiting [Unknown]
  - Syncope [Unknown]
  - Muscle strain [Unknown]
  - Ejaculation failure [Unknown]
  - Erectile dysfunction [Not Recovered/Not Resolved]
